APPROVED DRUG PRODUCT: LEVONORGESTREL
Active Ingredient: LEVONORGESTREL
Strength: 0.75MG
Dosage Form/Route: TABLET;ORAL
Application: A091328 | Product #001
Applicant: LUPIN LTD
Approved: Jan 23, 2013 | RLD: No | RS: No | Type: DISCN